FAERS Safety Report 11574020 (Version 6)
Quarter: 2017Q3

REPORT INFORMATION
  Report Type: Report from Study
  Country: CA (occurrence: CA)
  Receive Date: 20150930
  Receipt Date: 20170915
  Transmission Date: 20171127
  Serious: Yes (Other)
  Sender: FDA-Public Use
  Company Number: CA-ROCHE-1554085

PATIENT
  Sex: Female
  Weight: 44.04 kg

DRUGS (2)
  1. ERIVEDGE [Suspect]
     Active Substance: VISMODEGIB
     Indication: BASAL CELL CARCINOMA
     Route: 048
     Dates: start: 20140718
  2. ERIVEDGE [Suspect]
     Active Substance: VISMODEGIB
     Dosage: ON HOLD. RESTARTED ON AN UNSPECIFIED DATE.
     Route: 048
     Dates: start: 201408, end: 201707

REACTIONS (9)
  - Hypertension [Unknown]
  - Diarrhoea [Not Recovered/Not Resolved]
  - Muscle spasms [Not Recovered/Not Resolved]
  - Urinary incontinence [Not Recovered/Not Resolved]
  - Weight decreased [Not Recovered/Not Resolved]
  - Infection [Unknown]
  - Alopecia [Not Recovered/Not Resolved]
  - Decreased appetite [Not Recovered/Not Resolved]
  - Poor dental condition [Unknown]

NARRATIVE: CASE EVENT DATE: 2017
